FAERS Safety Report 7311966-4 (Version None)
Quarter: 2011Q1

REPORT INFORMATION
  Report Type: 
  Country: None (occurrence: None)
  Receive Date: 20110224
  Receipt Date: 20110211
  Transmission Date: 20110831
  Serious: Yes (Hospitalization)
  Sender: FDA-Public Use
  Company Number: FR-GENENTECH-313858

PATIENT
  Sex: Female

DRUGS (2)
  1. MABTHERA [Suspect]
     Indication: SYSTEMIC LUPUS ERYTHEMATOSUS
     Dosage: 1 G, UNK
     Route: 042
     Dates: start: 20101030
  2. MABTHERA [Suspect]
     Dosage: 1 G, UNK
     Route: 042
     Dates: start: 20101119, end: 20101119

REACTIONS (2)
  - FACE OEDEMA [None]
  - RASH [None]
